FAERS Safety Report 9104389 (Version 1)
Quarter: 2013Q1

REPORT INFORMATION
  Report Type: Spontaneous
  Country: FR (occurrence: FR)
  Receive Date: 20130220
  Receipt Date: 20130220
  Transmission Date: 20140127
  Serious: Yes (Other)
  Sender: FDA-Public Use
  Company Number: PHHY2013FR016213

PATIENT
  Sex: Female

DRUGS (1)
  1. AMOXICILLIN+CLAVULANATE [Suspect]
     Indication: ANTIBIOTIC PROPHYLAXIS
     Route: 042
     Dates: start: 20111103

REACTIONS (4)
  - Haematuria [Recovered/Resolved]
  - Oliguria [Recovered/Resolved]
  - Anuria [Recovered/Resolved]
  - Medication crystals in urine [Recovered/Resolved]
